FAERS Safety Report 7530624-4 (Version None)
Quarter: 2011Q2

REPORT INFORMATION
  Report Type: 
  Country: None (occurrence: None)
  Receive Date: 20110607
  Receipt Date: 20110523
  Transmission Date: 20111010
  Serious: Yes (Hospitalization)
  Sender: FDA-Public Use
  Company Number: BE-WATSON-2011-07331

PATIENT
  Age: 80 Year
  Sex: Male

DRUGS (2)
  1. FUROSEMIDE [Suspect]
     Indication: PRODUCT USED FOR UNKNOWN INDICATION
     Dosage: 40 MG, DAILY
  2. LITHIUM CARBONATE [Suspect]
     Indication: PRODUCT USED FOR UNKNOWN INDICATION
     Dosage: 250 MG, TID

REACTIONS (7)
  - CAMPYLOBACTER GASTROENTERITIS [None]
  - DEHYDRATION [None]
  - BLOOD GLUCOSE INCREASED [None]
  - NEPHROGENIC DIABETES INSIPIDUS [None]
  - ACUTE PRERENAL FAILURE [None]
  - DRUG INTERACTION [None]
  - TOXICITY TO VARIOUS AGENTS [None]
